FAERS Safety Report 8452347-X (Version None)
Quarter: 2012Q2

REPORT INFORMATION
  Report Type: 
  Country: None (occurrence: None)
  Receive Date: 20120620
  Receipt Date: 20120423
  Transmission Date: 20120825
  Serious: No
  Sender: FDA-Public Use
  Company Number: US-VERTEX PHARMACEUTICALS INC.-AE-2012-005004

PATIENT
  Sex: Female
  Weight: 54.48 kg

DRUGS (4)
  1. INCIVEK [Suspect]
     Indication: HEPATITIS C
     Route: 048
     Dates: start: 20120331
  2. PEGINTERFERON ALFA-2A [Concomitant]
     Indication: HEPATITIS C
     Route: 058
     Dates: start: 20120331
  3. RIBAVIRIN [Concomitant]
     Indication: HEPATITIS C
     Route: 048
     Dates: start: 20120331
  4. ESTROGEN REPLACEMENT [Concomitant]
     Indication: MENOPAUSE

REACTIONS (5)
  - FATIGUE [None]
  - RASH GENERALISED [None]
  - PRURITUS [None]
  - PAROSMIA [None]
  - MIGRAINE [None]
